FAERS Safety Report 19716655 (Version 1)
Quarter: 2021Q3

REPORT INFORMATION
  Report Type: Spontaneous
  Country: DE (occurrence: DE)
  Receive Date: 20210818
  Receipt Date: 20210818
  Transmission Date: 20211014
  Serious: Yes (Hospitalization)
  Sender: FDA-Public Use
  Company Number: DE-TEVA-2021-DE-1942380

PATIENT
  Age: 82 Year
  Sex: Male

DRUGS (7)
  1. RAMIPRIL. [Suspect]
     Active Substance: RAMIPRIL
     Dosage: 10 MILLIGRAM DAILY; 5 MG, 1?0?1?0
     Route: 048
  2. LEVOTHYROXIN?NATRIUM [Concomitant]
     Active Substance: LEVOTHYROXINE SODIUM
     Dosage: 75 MICROGRAM DAILY;  1?0?0?0
     Route: 048
  3. TORASEMID [Suspect]
     Active Substance: TORSEMIDE
     Dosage: 15 MILLIGRAM DAILY; 1?1?1?0
     Route: 048
  4. APIXABAN [Suspect]
     Active Substance: APIXABAN
     Dosage: 5 MILLIGRAM DAILY;  0?0?1?0
     Route: 048
  5. ATORVASTATIN [Concomitant]
     Active Substance: ATORVASTATIN
     Dosage: 60 MILLIGRAM DAILY;  1?1?1?0
     Route: 048
  6. KREON 25000 [Concomitant]
     Active Substance: PANCRELIPASE
     Dosage: 25000 IU (INTERNATIONAL UNIT) DAILY;  1?0?0?0
     Route: 048
  7. PANTOPRAZOL [Concomitant]
     Active Substance: PANTOPRAZOLE SODIUM
     Dosage: 40 MILLIGRAM DAILY;  1?0?0?0
     Route: 048

REACTIONS (5)
  - Dyspnoea [Recovering/Resolving]
  - Angina pectoris [Recovering/Resolving]
  - Haematochezia [Recovering/Resolving]
  - Dizziness [Recovering/Resolving]
  - Diarrhoea [Recovering/Resolving]
